FAERS Safety Report 9435097 (Version 3)
Quarter: 2014Q4

REPORT INFORMATION
  Report Type: Spontaneous
  Country: US (occurrence: US)
  Receive Date: 20130801
  Receipt Date: 20141021
  Transmission Date: 20150529
  Serious: Yes (Hospitalization)
  Sender: FDA-Public Use
  Company Number: US-BAYER-2013-092793

PATIENT
  Age: 30 Year
  Sex: Female
  Weight: 61.22 kg

DRUGS (1)
  1. MIRENA [Suspect]
     Active Substance: LEVONORGESTREL
     Indication: CONTRACEPTION
     Dosage: 20 MCG/24HR, CONT
     Route: 015
     Dates: start: 201203, end: 201203

REACTIONS (3)
  - Uterine perforation [None]
  - Pain [None]
  - Bowel movement irregularity [Not Recovered/Not Resolved]

NARRATIVE: CASE EVENT DATE: 201203
